FAERS Safety Report 9502705 (Version 1)
Quarter: 2013Q1

REPORT INFORMATION
  Report Type: Spontaneous
  Country: US (occurrence: None)
  Receive Date: 20130225
  Receipt Date: 20130225
  Transmission Date: 20140127
  Serious: Yes (Hospitalization)
  Sender: FDA-Public Use
  Company Number: 2012-263

PATIENT
  Age: 63 Year
  Sex: Female
  Weight: 77.1 kg

DRUGS (5)
  1. PRIALT [Suspect]
     Indication: PAIN
     Dates: start: 20120417, end: 20120417
  2. TRAMADOL [Concomitant]
  3. FENTANYL [Concomitant]
  4. ULTRACET (PARACETAMOL, TRAMADOL HYDROCHLORIDE) [Concomitant]
  5. CIPRO (CIPROFLOXACIN) [Concomitant]

REACTIONS (2)
  - Nausea [None]
  - Vomiting [None]
